FAERS Safety Report 7993038-9 (Version None)
Quarter: 2011Q4

REPORT INFORMATION
  Report Type: 
  Country: None (occurrence: None)
  Receive Date: 20111219
  Receipt Date: 20111214
  Transmission Date: 20120403
  Serious: Yes (Hospitalization)
  Sender: FDA-Public Use
  Company Number: US-GILEAD-2011-0047353

PATIENT
  Sex: Male

DRUGS (2)
  1. REVATIO [Concomitant]
  2. LETAIRIS [Suspect]
     Indication: PULMONARY HYPERTENSION
     Dosage: 5 MG, UNK
     Route: 048
     Dates: start: 20110927, end: 20111121

REACTIONS (3)
  - ANAEMIA [None]
  - GASTROINTESTINAL HAEMORRHAGE [None]
  - FALL [None]
